FAERS Safety Report 7237135-4 (Version None)
Quarter: 2011Q1

REPORT INFORMATION
  Report Type: 
  Country: None (occurrence: None)
  Receive Date: 20110121
  Receipt Date: 20110113
  Transmission Date: 20110831
  Serious: Yes (Other)
  Sender: FDA-Public Use
  Company Number: US-ASTRAZENECA-2007UW09584

PATIENT
  Age: 42 Year
  Sex: Female
  Weight: 97.1 kg

DRUGS (10)
  1. SEROQUEL [Suspect]
     Route: 048
     Dates: start: 20040429
  2. LEXAPRO [Concomitant]
     Dates: start: 20030101
  3. FLEXERIL [Concomitant]
     Dates: start: 20040401
  4. MAXALT [Concomitant]
     Dates: start: 20030321
  5. PAXIL [Concomitant]
  6. NAPROXEN [Concomitant]
     Indication: ARTHRALGIA
     Dates: start: 20030321
  7. VALIUM [Concomitant]
     Dates: start: 20040429
  8. SEROQUEL [Suspect]
     Indication: SCHIZOPHRENIA
     Route: 048
     Dates: start: 20030101
  9. PERCOCET [Concomitant]
     Dosage: 5/325
     Dates: start: 20040429
  10. AMITRIPTYLINE [Concomitant]

REACTIONS (14)
  - HYPERGLYCAEMIA [None]
  - GLUCOSE TOLERANCE IMPAIRED [None]
  - BACTERIAL DISEASE CARRIER [None]
  - SARCOIDOSIS [None]
  - GASTROOESOPHAGEAL REFLUX DISEASE [None]
  - NECK PAIN [None]
  - HYPERTENSION [None]
  - PAIN IN EXTREMITY [None]
  - ASTHMA [None]
  - BLOOD CHOLESTEROL INCREASED [None]
  - INTERVERTEBRAL DISC PROTRUSION [None]
  - INTERVERTEBRAL DISC DISORDER [None]
  - DIABETES MELLITUS [None]
  - BLOOD GLUCOSE DECREASED [None]
